FAERS Safety Report 8110360 (Version 6)
Quarter: 2013Q3

REPORT INFORMATION
  Report Type: Report from Study
  Country: TW (occurrence: TW)
  Receive Date: 20110829
  Receipt Date: 20130904
  Transmission Date: 20140515
  Serious: Yes (Hospitalization)
  Sender: FDA-Public Use
  Company Number: TW-CELGENEUS-153-C5013-11062534

PATIENT
  Age: 57 Year
  Sex: Female
  Weight: 50.2 kg

DRUGS (27)
  1. REVLIMID [Suspect]
     Indication: PLASMA CELL MYELOMA
     Route: 048
     Dates: start: 20110413
  2. REVLIMID [Suspect]
     Dosage: 10 MILLIGRAM
     Route: 048
     Dates: start: 20110603
  3. REVLIMID [Suspect]
     Dosage: 10 MILLIGRAM
     Route: 048
     Dates: start: 20110707, end: 20110713
  4. REVLIMID [Suspect]
     Dosage: 10 MILLIGRAM
     Route: 048
     Dates: start: 20110803, end: 20110819
  5. DEXAMETHASONE [Suspect]
     Indication: PLASMA CELL MYELOMA
     Dosage: 20 MILLIGRAM
     Route: 065
     Dates: start: 20110413
  6. DEXAMETHASONE [Suspect]
     Dosage: 16 MILLIGRAM
     Route: 065
     Dates: start: 20110603, end: 20110813
  7. DEXAMETHASONE [Suspect]
     Dosage: 8 MILLIGRAM
     Route: 048
     Dates: start: 20110715, end: 20110716
  8. DEXAMETHASONE [Suspect]
     Dosage: 8 MILLIGRAM
     Route: 048
     Dates: end: 20110812
  9. DEXAMETHASONE [Suspect]
     Dosage: 8 MILLIGRAM
     Route: 048
     Dates: start: 20110813
  10. PREDNISOLONE [Suspect]
     Indication: BONE PAIN
     Dosage: 10 MILLIGRAM
     Route: 048
     Dates: start: 20110619
  11. PREDNISOLONE [Suspect]
     Indication: PLASMA CELL MYELOMA
     Dosage: 10 MILLIGRAM
     Route: 048
     Dates: start: 20110806, end: 20110906
  12. ENTECAVIR [Concomitant]
     Indication: HERPES ZOSTER
     Dosage: .5 MILLIGRAM
     Route: 048
     Dates: start: 20110311
  13. ZOLEDRONIC ACID [Concomitant]
     Indication: OSTEOPOROSIS
     Route: 065
     Dates: start: 20110311
  14. MAGNESIUM OXIDE [Concomitant]
     Indication: CONSTIPATION
     Route: 048
     Dates: start: 20110414
  15. ACETAMINOPHEN [Concomitant]
     Indication: PYREXIA
     Route: 048
     Dates: start: 20110426
  16. ACETAMINOPHEN [Concomitant]
     Indication: URINARY TRACT INFECTION
     Dosage: 500 MILLIGRAM
     Route: 048
     Dates: start: 20110719
  17. ACETAMINOPHEN [Concomitant]
     Indication: SEPSIS
     Route: 048
  18. ZOLPIDEM [Concomitant]
     Indication: INSOMNIA
     Route: 048
     Dates: start: 20110408, end: 20110818
  19. ALPRAZOLAM [Concomitant]
     Indication: INSOMNIA
     Route: 048
     Dates: start: 20110610, end: 20110613
  20. LAMIVUDINE [Concomitant]
     Indication: HEPATITIS B
     Dosage: 100 MILLIGRAM
     Route: 065
     Dates: start: 20110603, end: 20110701
  21. ALUMINUM MAGNESIA [Concomitant]
     Indication: ABDOMINAL PAIN UPPER
     Dosage: 10 MILLILITER
     Route: 065
     Dates: start: 20110619
  22. ULTRACET [Concomitant]
     Indication: PYREXIA
     Route: 048
     Dates: start: 20110901
  23. ULTRACET [Concomitant]
     Indication: PAIN
     Route: 048
  24. NYSTATIN [Concomitant]
     Indication: ORAL CANDIDIASIS
     Route: 065
     Dates: start: 20110905
  25. CORAM [Concomitant]
     Indication: INFECTION
     Route: 065
     Dates: start: 20110901
  26. FLUODERM [Concomitant]
     Indication: DERMATITIS
     Route: 061
     Dates: start: 20110628, end: 20110701
  27. BISACODYL [Concomitant]
     Indication: CONSTIPATION
     Route: 065
     Dates: start: 20110713, end: 20110717

REACTIONS (11)
  - Gingivitis ulcerative [Recovered/Resolved]
  - Gingivitis [Recovered/Resolved]
  - Gingivitis [Recovered/Resolved]
  - Febrile neutropenia [Recovered/Resolved]
  - Pharyngitis [Recovered/Resolved]
  - Sepsis [Recovered/Resolved]
  - Urinary tract infection [Recovered/Resolved]
  - Sepsis [Recovered/Resolved]
  - Febrile neutropenia [Recovered/Resolved]
  - Febrile neutropenia [Recovered/Resolved]
  - Renal failure [Recovered/Resolved]
